FAERS Safety Report 5087001-8 (Version None)
Quarter: 2006Q3

REPORT INFORMATION
  Report Type: 
  Country: None (occurrence: None)
  Receive Date: 20060818
  Receipt Date: 20060803
  Transmission Date: 20061208
  Serious: Yes (Death)
  Sender: FDA-Public Use
  Company Number: 2266

PATIENT
  Age: 32 Year
  Sex: Female
  Weight: 117.9352 kg

DRUGS (1)
  1. AVINZA [Suspect]
     Indication: PAIN
     Dates: start: 20060101, end: 20060101

REACTIONS (1)
  - OVERDOSE [None]
